FAERS Safety Report 15917081 (Version 1)
Quarter: 2019Q1

REPORT INFORMATION
  Report Type: Spontaneous
  Country: US (occurrence: US)
  Receive Date: 20190115
  Receipt Date: 20190115
  Transmission Date: 20190417
  Serious: No
  Sender: FDA-Public Use
  Company Number: None

PATIENT
  Age: 75 Year
  Sex: Female

DRUGS (1)
  1. CAPECITABINE TAB 500MG [Suspect]
     Active Substance: CAPECITABINE

REACTIONS (8)
  - Diarrhoea [None]
  - Depression [None]
  - Palmar-plantar erythrodysaesthesia syndrome [None]
  - Fatigue [None]
  - Hypoaesthesia [None]
  - Muscular weakness [None]
  - Decreased appetite [None]
  - Paraesthesia [None]

NARRATIVE: CASE EVENT DATE: 20190115
